FAERS Safety Report 9733969 (Version 2)
Quarter: 2013Q4

REPORT INFORMATION
  Report Type: Report from Study
  Country: CA (occurrence: CA)
  Receive Date: 20131205
  Receipt Date: 20131213
  Transmission Date: 20140711
  Serious: Yes (Hospitalization)
  Sender: FDA-Public Use
  Company Number: PHHO2013CA015678

PATIENT
  Age: 80 Year
  Sex: Male
  Weight: 80 kg

DRUGS (10)
  1. ICL670A [Suspect]
     Indication: IRON OVERLOAD
     Dosage: 10 MG/KG, /1OM
     Route: 048
     Dates: start: 20130326, end: 20131127
  2. HYZAAR [Concomitant]
     Indication: HYPERTENSION
     Dosage: 25 MG, ^ID^
     Route: 048
  3. NORVASC [Concomitant]
     Indication: HYPERTENSION
     Dosage: 5 MG, QHS ^ID^
  4. FLOMAX [Concomitant]
     Indication: POLLAKIURIA
     Dosage: 4 MG, ^ID^
  5. ATELONAL [Concomitant]
     Indication: HYPERTENSION
     Dosage: 25 MG, ^ID^
  6. TYLENOL ARTHRITIS [Concomitant]
     Indication: ARTERIOSCLEROSIS
     Dosage: 650 MG, BID
  7. VITAMIN D [Concomitant]
     Indication: PROPHYLAXIS
     Dosage: 1000 IU
  8. GLUCOSAMINE [Concomitant]
     Indication: PROPHYLAXIS
     Dosage: 500 MG, BID
  9. OMEGA 3 [Concomitant]
     Indication: PROPHYLAXIS
     Dosage: 1000 MG, ^ID^
  10. ATIVAN [Concomitant]
     Indication: ANXIETY
     Dosage: 5 MG, PRN
     Dates: start: 20120226

REACTIONS (1)
  - Septic shock [Recovering/Resolving]
